FAERS Safety Report 19907880 (Version 3)
Quarter: 2021Q4

REPORT INFORMATION
  Report Type: Report from Study
  Country: CN (occurrence: None)
  Receive Date: 20211001
  Receipt Date: 20211102
  Transmission Date: 20220303
  Serious: Yes (Hospitalization)
  Sender: FDA-Public Use
  Company Number: 2021A687421

PATIENT
  Age: 17804 Day
  Sex: Male

DRUGS (18)
  1. DURVALUMAB [Suspect]
     Active Substance: DURVALUMAB
     Indication: Bile duct cancer
     Route: 042
     Dates: start: 20210813, end: 20210813
  2. CISPLATIN [Suspect]
     Active Substance: CISPLATIN
     Indication: Bile duct cancer
     Dosage: 25 MG/M2 (EACH ADMINISTERED ON DAYS 1 AND 8 Q3W) UP TO 8 CYCLES
     Route: 042
     Dates: start: 20210813, end: 20210813
  3. GEMCITABINE [Suspect]
     Active Substance: GEMCITABINE
     Indication: Bile duct cancer
     Dosage: 1000 MG/M2 (EACH ADMINISTERED ON DAYS 1 AND 8 Q3W) UP TO 8 CYCLES
     Route: 042
     Dates: start: 20210813, end: 20210813
  4. SILYBUM MARIANUM/VITAMIN B12 NOS/VITAMIN E NOS/GLUTATHIONE [Concomitant]
     Indication: Prophylaxis
     Route: 042
     Dates: start: 20210809, end: 20210819
  5. POLYENE PHOSPHATIDYLCHOLINE INJECTION [Concomitant]
     Indication: Prophylaxis
     Route: 042
     Dates: start: 20210809, end: 20210819
  6. METHYLPREDNISOLONE SODIUM SUCCINATE [Concomitant]
     Active Substance: METHYLPREDNISOLONE SODIUM SUCCINATE
     Indication: Liver injury
     Route: 042
     Dates: start: 20210817, end: 20210818
  7. METHYLPREDNISOLONE SODIUM SUCCINATE [Concomitant]
     Active Substance: METHYLPREDNISOLONE SODIUM SUCCINATE
     Indication: Liver injury
     Route: 042
     Dates: start: 20210817, end: 20210817
  8. ESOMEPRAZOLE SODIUM [Concomitant]
     Active Substance: ESOMEPRAZOLE SODIUM
     Indication: Gastritis prophylaxis
     Route: 042
     Dates: start: 20210811, end: 20210811
  9. ESOMEPRAZOLE SODIUM [Concomitant]
     Active Substance: ESOMEPRAZOLE SODIUM
     Indication: Prophylaxis
     Route: 042
     Dates: start: 20210811, end: 20210811
  10. VITAMIN K1 [Concomitant]
     Active Substance: PHYTONADIONE
     Indication: Haemorrhage
     Route: 030
     Dates: start: 20210809, end: 20210809
  11. VITAMIN K1 [Concomitant]
     Active Substance: PHYTONADIONE
     Indication: Haemorrhage
     Route: 042
     Dates: start: 20210811, end: 20210811
  12. HYDROCODONE HYDROCHLORIDE SUSTAINED-RELEASE TABLETS [Concomitant]
     Indication: Abdominal pain lower
     Route: 048
     Dates: start: 20210809, end: 20210811
  13. HAEMOCOAGULASE AGKISTRODON FOR INJECTION [Concomitant]
     Indication: Haemorrhage
     Route: 042
     Dates: start: 20210811, end: 20210811
  14. AMINOTOLUENE ACID INJECTION [Concomitant]
     Indication: Haemorrhage
     Route: 042
     Dates: start: 20210811, end: 20210811
  15. ETAMSYLATE INJECTION [Concomitant]
     Indication: Haemorrhage
     Route: 042
     Dates: start: 20210811, end: 20210811
  16. APREPITANT [Concomitant]
     Active Substance: APREPITANT
     Indication: Premedication
     Route: 048
     Dates: start: 20210813, end: 20210815
  17. DEXAMETHASONE PALMITATE INJECTION [Concomitant]
     Indication: Premedication
     Route: 042
     Dates: start: 20210813, end: 20210813
  18. LACTULOSE [Concomitant]
     Active Substance: LACTULOSE
     Indication: Diarrhoea
     Route: 048
     Dates: start: 20210809, end: 20210813

REACTIONS (2)
  - Jaundice cholestatic [Recovered/Resolved]
  - Hepatic function abnormal [Recovered/Resolved]

NARRATIVE: CASE EVENT DATE: 20210817
